FAERS Safety Report 6238977-4 (Version None)
Quarter: 2009Q2

REPORT INFORMATION
  Report Type: 
  Country: None (occurrence: None)
  Receive Date: 20090622
  Receipt Date: 20090617
  Transmission Date: 20091009
  Serious: Yes (Life-Threatening, Other)
  Sender: FDA-Public Use
  Company Number: A0780172A

PATIENT
  Age: 27 Year
  Sex: Male
  Weight: 51 kg

DRUGS (14)
  1. ZIAGEN [Suspect]
     Indication: HIV INFECTION
     Dosage: 600MG PER DAY
     Route: 048
     Dates: start: 20090324, end: 20090325
  2. EFAVIRENZ [Concomitant]
     Indication: HIV INFECTION
     Dosage: 600MG PER DAY
  3. LAMIVUDINE [Concomitant]
     Indication: DIALYSIS
     Dosage: 150MG THREE TIMES PER WEEK
  4. RALTEGRAVIR [Concomitant]
     Indication: HIV INFECTION
     Dosage: 400MG TWICE PER DAY
  5. AZITHROMYCIN [Concomitant]
     Indication: HIV INFECTION
     Dosage: 600MG EVERY 3 DAYS
  6. BACTRIM [Concomitant]
     Indication: DIALYSIS
     Dosage: 1TAB THREE TIMES PER WEEK
  7. MEPRON [Concomitant]
  8. PROGRAF [Concomitant]
     Dosage: 4MG TWICE PER DAY
  9. CELLCEPT [Concomitant]
     Dosage: 1000MG TWICE PER DAY
  10. PREDNISONE TAPER [Concomitant]
     Dosage: 10MG PER DAY
  11. UNSPECIFIED MEDICATIONS [Concomitant]
  12. CALCITRIOL [Concomitant]
  13. SODIUM BICARBONATE [Concomitant]
  14. LAMIVUDINE [Concomitant]
     Indication: HIV INFECTION
     Dosage: 150MG THREE TIMES PER WEEK

REACTIONS (8)
  - CHEST DISCOMFORT [None]
  - CHILLS [None]
  - DIARRHOEA [None]
  - HYPERSENSITIVITY [None]
  - MALAISE [None]
  - NAUSEA [None]
  - PAIN [None]
  - PARAESTHESIA [None]
